FAERS Safety Report 19290879 (Version 1)
Quarter: 2021Q2

REPORT INFORMATION
  Report Type: Spontaneous
  Country: US (occurrence: US)
  Receive Date: 20210523
  Receipt Date: 20210523
  Transmission Date: 20210717
  Serious: No
  Sender: FDA-Public Use
  Company Number: US-ORGANON-O2105USA001650

PATIENT
  Age: 26 Year
  Sex: Female
  Weight: 116.1 kg

DRUGS (2)
  1. NEXPLANON [Suspect]
     Active Substance: ETONOGESTREL
     Dosage: 1 ROD
     Route: 059
     Dates: start: 20210514
  2. NEXPLANON [Suspect]
     Active Substance: ETONOGESTREL
     Dosage: 1 ROD IN LEFT ARM, EVERY 3 YEARS
     Route: 059
     Dates: start: 20200403, end: 20210514

REACTIONS (2)
  - No adverse event [Unknown]
  - Device breakage [Recovered/Resolved]
